FAERS Safety Report 6660584-X (Version None)
Quarter: 2010Q1

REPORT INFORMATION
  Report Type: 
  Country: None (occurrence: None)
  Receive Date: 20100331
  Receipt Date: 20100319
  Transmission Date: 20100710
  Serious: Yes (Hospitalization)
  Sender: FDA-Public Use
  Company Number: IT-JNJFOC-20100306817

PATIENT
  Age: 19 Year
  Sex: Female

DRUGS (7)
  1. ETRAVIRINE [Suspect]
     Indication: HIV INFECTION
     Route: 048
  2. PREZISTA [Suspect]
     Indication: HIV INFECTION
  3. PREZISTA [Suspect]
  4. TENOFOVIR [Suspect]
     Indication: HIV INFECTION
     Route: 048
  5. TENOFOVIR [Suspect]
     Route: 048
  6. RITONAVIR [Suspect]
     Indication: HIV INFECTION
     Route: 048
  7. RITONAVIR [Suspect]
     Route: 048

REACTIONS (4)
  - COUGH [None]
  - PYREXIA [None]
  - TRANSAMINASES INCREASED [None]
  - URTICARIA PAPULAR [None]
